FAERS Safety Report 20448928 (Version 1)
Quarter: 2022Q1

REPORT INFORMATION
  Report Type: Spontaneous
  Country: US (occurrence: US)
  Receive Date: 20220209
  Receipt Date: 20220209
  Transmission Date: 20220424
  Serious: Yes (Other)
  Sender: FDA-Public Use
  Company Number: US-PFIZER INC-202200165584

PATIENT
  Age: 54 Year
  Sex: Female
  Weight: 77.11 kg

DRUGS (1)
  1. PREMARIN [Suspect]
     Active Substance: ESTROGENS, CONJUGATED
     Indication: Artificial menopause
     Dosage: 1.25 MG, 1X/DAY
     Dates: start: 1996

REACTIONS (9)
  - Cardiac failure [Unknown]
  - Aortic aneurysm [Unknown]
  - Illness [Unknown]
  - Hypertension [Unknown]
  - Frustration tolerance decreased [Unknown]
  - Hot flush [Unknown]
  - Feeling of body temperature change [Unknown]
  - Heart rate increased [Unknown]
  - Body height decreased [Unknown]

NARRATIVE: CASE EVENT DATE: 20150601
